FAERS Safety Report 4448178-8 (Version None)
Quarter: 2004Q3

REPORT INFORMATION
  Report Type: 
  Country: None (occurrence: None)
  Receive Date: 20040813
  Receipt Date: 20040621
  Transmission Date: 20050211
  Serious: Yes (Other)
  Sender: FDA-Public Use
  Company Number: S04-USA-00427-01

PATIENT
  Age: 83 Year
  Sex: Male

DRUGS (13)
  1. NAMENDA [Suspect]
     Indication: DEMENTIA ALZHEIMER'S TYPE
     Dosage: 5 MG QD PO
     Route: 048
     Dates: start: 20040204, end: 20040210
  2. NAMENDA [Suspect]
     Indication: DEMENTIA ALZHEIMER'S TYPE
     Dosage: 10 MG QD PO
     Route: 048
     Dates: start: 20040211, end: 20040217
  3. NAMENDA [Suspect]
     Indication: DEMENTIA ALZHEIMER'S TYPE
     Dosage: 15 MG QD PO
     Route: 048
     Dates: start: 20040218, end: 20040224
  4. NAMENDA [Suspect]
     Indication: DEMENTIA ALZHEIMER'S TYPE
     Dosage: 20 MG QD PO
     Route: 048
     Dates: start: 20040225
  5. DEPAKOTE [Concomitant]
  6. IMDUR [Concomitant]
  7. METOPROLOL [Concomitant]
  8. CARDIAZEM [Concomitant]
  9. FOLIC ACID [Concomitant]
  10. OMEGA 3 (FISH OIL) [Concomitant]
  11. VITAMIN E [Concomitant]
  12. MULTI-VITAMINS [Concomitant]
  13. PLAVIX [Concomitant]

REACTIONS (7)
  - AGITATION [None]
  - DECREASED APPETITE [None]
  - FATIGUE [None]
  - MOOD ALTERED [None]
  - SOMNOLENCE [None]
  - STOMACH DISCOMFORT [None]
  - THROMBOPHLEBITIS [None]
